FAERS Safety Report 20913305 (Version 1)
Quarter: 2022Q2

REPORT INFORMATION
  Report Type: Report from Study
  Country: CA (occurrence: CA)
  Receive Date: 20220603
  Receipt Date: 20220603
  Transmission Date: 20220721
  Serious: Yes (Other)
  Sender: FDA-Public Use
  Company Number: CA-GILEAD-2022-0567391

PATIENT
  Sex: Female
  Weight: 77 kg

DRUGS (10)
  1. SACITUZUMAB GOVITECAN [Suspect]
     Active Substance: SACITUZUMAB GOVITECAN
     Indication: Triple negative breast cancer
     Dosage: 650 MG
     Route: 042
     Dates: start: 20220117, end: 20220502
  2. SACITUZUMAB GOVITECAN [Suspect]
     Active Substance: SACITUZUMAB GOVITECAN
     Dosage: UNK
     Route: 042
  3. TAMOXIFEN [Concomitant]
     Active Substance: TAMOXIFEN
  4. LETROZOLE [Concomitant]
     Active Substance: LETROZOLE
  5. IBRANCE [Concomitant]
     Active Substance: PALBOCICLIB
  6. TAXOL [Concomitant]
     Active Substance: PACLITAXEL
  7. EC [LEVONORGESTREL] [Concomitant]
  8. GEMCITABINE [Concomitant]
     Active Substance: GEMCITABINE
  9. CYCLOPHOSPHAMIDE [Concomitant]
     Active Substance: CYCLOPHOSPHAMIDE
  10. CAPECITABINE [Concomitant]
     Active Substance: CAPECITABINE

REACTIONS (4)
  - Disease progression [Unknown]
  - White blood cell count decreased [Unknown]
  - Diarrhoea [Recovering/Resolving]
  - Weight increased [Unknown]
